FAERS Safety Report 12115901 (Version 2)
Quarter: 2016Q1

REPORT INFORMATION
  Report Type: Spontaneous
  Country: US (occurrence: US)
  Receive Date: 20160225
  Receipt Date: 20160321
  Transmission Date: 20160526
  Serious: Yes (Congenital Anomaly)
  Sender: FDA-Public Use
  Company Number: US-LPDUSPRD-20160167

PATIENT
  Sex: Female

DRUGS (1)
  1. PROGESTERONE INJECTION (0750-01) [Suspect]
     Active Substance: PROGESTERONE
     Dosage: DOSE NOT PROVIDED
     Route: 064

REACTIONS (2)
  - Congenital genital malformation [Not Recovered/Not Resolved]
  - Foetal exposure during pregnancy [Unknown]
